FAERS Safety Report 25925937 (Version 2)
Quarter: 2025Q4

REPORT INFORMATION
  Report Type: Spontaneous
  Country: US (occurrence: US)
  Receive Date: 20251015
  Receipt Date: 20251107
  Transmission Date: 20260118
  Serious: No
  Sender: SANOFI AVENTIS
  Company Number: US-SA-2025SA305853

PATIENT
  Age: 62 Year
  Sex: Male

DRUGS (2)
  1. DUPIXENT [Suspect]
     Active Substance: DUPILUMAB
     Indication: Dermatitis atopic
     Dosage: 600 MG, 1X
     Route: 058
     Dates: start: 20250821, end: 20250821
  2. DUPIXENT [Suspect]
     Active Substance: DUPILUMAB
     Indication: Eczema
     Dosage: 300 MG, QOW
     Route: 058
     Dates: start: 202509

REACTIONS (8)
  - Rash erythematous [Recovering/Resolving]
  - Rash pruritic [Recovering/Resolving]
  - Ocular hyperaemia [Recovering/Resolving]
  - Vision blurred [Recovering/Resolving]
  - Dry skin [Unknown]
  - Pigmentation disorder [Unknown]
  - Eye irritation [Recovering/Resolving]
  - Eye pruritus [Recovering/Resolving]

NARRATIVE: CASE EVENT DATE: 20250101
